FAERS Safety Report 23155604 (Version 3)
Quarter: 2023Q4

REPORT INFORMATION
  Report Type: Spontaneous
  Country: US (occurrence: US)
  Receive Date: 20231107
  Receipt Date: 20231122
  Transmission Date: 20240110
  Serious: Yes (Other)
  Sender: FDA-Public Use
  Company Number: US-SA-SAC20231030002635

PATIENT
  Age: 25 Year
  Sex: Male
  Weight: 50.348 kg

DRUGS (8)
  1. DUPIXENT [Suspect]
     Active Substance: DUPILUMAB
     Indication: Eosinophilic oesophagitis
     Dosage: 300 MG, QW
     Route: 058
  2. CALCIUM CARBONATE [Concomitant]
     Active Substance: CALCIUM CARBONATE
     Dosage: 1500 MG, QD
  3. CETIRIZINE [Concomitant]
     Active Substance: CETIRIZINE HYDROCHLORIDE
     Dosage: UNK
     Route: 048
  4. FLOVENT HFA [Concomitant]
     Active Substance: FLUTICASONE PROPIONATE
     Dosage: 2 PUFFS
     Route: 048
  5. HUMIRA [Concomitant]
     Active Substance: ADALIMUMAB
     Dosage: 40 MG, QOW
  6. MULTIVITAMIN IRON [Concomitant]
     Dosage: 1
     Route: 048
  7. OMEPRAZOLE [Concomitant]
     Active Substance: OMEPRAZOLE
     Dosage: 1 PO, BID
  8. SINGULAIR [Concomitant]
     Active Substance: MONTELUKAST SODIUM
     Dosage: 1PO, QD

REACTIONS (9)
  - Haematochezia [Unknown]
  - Weight abnormal [Unknown]
  - Cough [Recovering/Resolving]
  - Injection site urticaria [Unknown]
  - Ecchymosis [Unknown]
  - Weight decreased [Unknown]
  - Weight increased [Unknown]
  - Decreased appetite [Unknown]
  - Injection site swelling [Unknown]
